FAERS Safety Report 4455524-8 (Version None)
Quarter: 2004Q3

REPORT INFORMATION
  Report Type: 
  Country: None (occurrence: None)
  Receive Date: 20040917
  Receipt Date: 20040903
  Transmission Date: 20050211
  Serious: No
  Sender: FDA-Public Use
  Company Number: 04H-020-0272587-00

PATIENT
  Sex: 0

DRUGS (2)
  1. DOBUTAMINE HCL [Suspect]
     Indication: STRESS ECHOCARDIOGRAM
     Dosage: 5 MCG/KG/MIN, INTRAVENOUS
     Route: 042
  2. ATROPINE SULFATE [Suspect]
     Indication: STRESS ECHOCARDIOGRAM
     Dosage: 0.25 MG/MIN, INTRAVENOUS
     Route: 042

REACTIONS (1)
  - SUPRAVENTRICULAR TACHYCARDIA [None]
